FAERS Safety Report 4369496-8 (Version None)
Quarter: 2004Q2

REPORT INFORMATION
  Report Type: 
  Country: None (occurrence: None)
  Receive Date: 20040527
  Receipt Date: 20040518
  Transmission Date: 20050107
  Serious: Yes (Death, Other)
  Sender: FDA-Public Use
  Company Number: 200417915BWH

PATIENT

DRUGS (1)
  1. AVELOX [Suspect]
     Dosage: ORAL
     Route: 048
     Dates: start: 20040401

REACTIONS (2)
  - LIVER FUNCTION TEST ABNORMAL [None]
  - PULMONARY EMBOLISM [None]
